FAERS Safety Report 6609161-7 (Version None)
Quarter: 2010Q1

REPORT INFORMATION
  Report Type: 
  Country: None (occurrence: None)
  Receive Date: 20100212
  Receipt Date: 20100126
  Transmission Date: 20100710
  Serious: Yes (Death, Hospitalization, Other)
  Sender: FDA-Public Use
  Company Number: AEUSA201000026

PATIENT
  Age: 65 Year
  Sex: Male

DRUGS (18)
  1. GAMUNEX [Suspect]
     Indication: OFF LABEL USE
     Dosage: 80 GM; Q3W; IV
     Route: 042
     Dates: start: 20061101, end: 20080206
  2. FOLATE [Concomitant]
  3. EPLERENONE [Concomitant]
  4. ASPIRIN [Concomitant]
  5. AMIODARONE HCL [Concomitant]
  6. COLCHICINE [Concomitant]
  7. TIOTROPIUM [Concomitant]
  8. ALLOPURINOL [Concomitant]
  9. SENOKOT [Concomitant]
  10. LANTUS [Concomitant]
  11. POTASSIUM [Concomitant]
  12. HYDRALAZINE HCL [Concomitant]
  13. LASIX [Concomitant]
  14. ARGATROBAN [Concomitant]
  15. MILRINONE [Concomitant]
  16. TYLENOL-500 [Concomitant]
  17. METOLAZONE [Concomitant]
  18. FLUTICASONE [Concomitant]

REACTIONS (10)
  - CARDIAC FAILURE CONGESTIVE [None]
  - CHILLS [None]
  - CONDITION AGGRAVATED [None]
  - DIALYSIS [None]
  - HEADACHE [None]
  - MALAISE [None]
  - NAUSEA [None]
  - NECK PAIN [None]
  - RENAL FAILURE ACUTE [None]
  - SEPSIS [None]
